FAERS Safety Report 10395570 (Version 1)
Quarter: 2014Q3

REPORT INFORMATION
  Report Type: Spontaneous
  Country: CA (occurrence: CA)
  Receive Date: 20140820
  Receipt Date: 20140820
  Transmission Date: 20150326
  Serious: Yes (Death)
  Sender: FDA-Public Use
  Company Number: CA-AMGEN-CANSP2014063079

PATIENT
  Age: 38 Year
  Sex: Female

DRUGS (1)
  1. NEULASTA [Suspect]
     Active Substance: PEGFILGRASTIM
     Indication: NEUTROPENIA
     Dosage: 10 MG/1.0ML, UNK
     Route: 065
     Dates: start: 20130823

REACTIONS (1)
  - Death [Fatal]

NARRATIVE: CASE EVENT DATE: 201408
